FAERS Safety Report 8030622-0 (Version None)
Quarter: 2012Q1

REPORT INFORMATION
  Report Type: 
  Country: None (occurrence: None)
  Receive Date: 20120109
  Receipt Date: 20111229
  Transmission Date: 20120608
  Serious: Yes (Hospitalization)
  Sender: FDA-Public Use
  Company Number: AU-JNJFOC-20111200931

PATIENT
  Sex: Male
  Weight: 92 kg

DRUGS (9)
  1. VENLAFAXINE [Concomitant]
     Indication: DEPRESSION
     Route: 065
     Dates: start: 20110816
  2. PREDNISOLONE [Suspect]
     Indication: PROSTATE CANCER METASTATIC
     Route: 048
     Dates: start: 20111118
  3. ABIRATERONE ACETATE [Suspect]
     Route: 048
  4. OXYCODONE HCL [Concomitant]
     Indication: PAIN MANAGEMENT
     Route: 065
     Dates: start: 20100101
  5. ACETAMINOPHEN [Concomitant]
     Indication: PAIN
     Route: 065
     Dates: start: 20090101
  6. MULTI-VITAMINS [Concomitant]
     Indication: MEDICAL DIET
     Route: 065
     Dates: start: 20110101
  7. OXYCONTIN [Concomitant]
     Indication: PAIN MANAGEMENT
     Route: 065
     Dates: start: 20100101
  8. ABIRATERONE ACETATE [Suspect]
     Indication: PROSTATE CANCER METASTATIC
     Route: 048
     Dates: start: 20111118, end: 20111119
  9. PANTOPRAZOLE [Concomitant]
     Indication: PROPHYLAXIS
     Route: 065
     Dates: start: 20100101

REACTIONS (2)
  - BONE PAIN [None]
  - TUMOUR FLARE [None]
